FAERS Safety Report 15293345 (Version 1)
Quarter: 2018Q3

REPORT INFORMATION
  Report Type: Spontaneous
  Country: US (occurrence: US)
  Receive Date: 20180820
  Receipt Date: 20180820
  Transmission Date: 20181010
  Serious: No
  Sender: FDA-Public Use
  Company Number: US-TEVA-808864ACC

PATIENT
  Age: 72 Year
  Sex: Female
  Weight: 53.06 kg

DRUGS (4)
  1. AMLODIPINEAMLODIPINE [Concomitant]
  2. FEXOFENADINE [Suspect]
     Active Substance: FEXOFENADINE\FEXOFENADINE HYDROCHLORIDE
     Indication: PERENNIAL ALLERGY
     Dosage: 180 MILLIGRAM DAILY;
     Route: 048
     Dates: start: 201706
  3. VITAMINS NOS [Concomitant]
     Active Substance: VITAMINS
  4. BI EST [Concomitant]
     Active Substance: ESTRADIOL\ESTRIOL
     Dates: start: 2015

REACTIONS (3)
  - Sinus congestion [Recovering/Resolving]
  - Drug administered to patient of inappropriate age [Unknown]
  - Oropharyngeal pain [Recovered/Resolved]

NARRATIVE: CASE EVENT DATE: 201709
